FAERS Safety Report 5305269-7 (Version None)
Quarter: 2007Q1

REPORT INFORMATION
  Report Type: 
  Country: None (occurrence: None)
  Receive Date: 20070201
  Receipt Date: 20061110
  Transmission Date: 20070707
  Serious: No
  Sender: FDA-Public Use
  Company Number: 2006PV024977

PATIENT
  Age: 64 Year
  Sex: Female
  Weight: 108.4097 kg

DRUGS (4)
  1. BYETTA [Suspect]
     Indication: DIABETES MELLITUS NON-INSULIN-DEPENDENT
     Dosage: 10 MCG;BD;SC, 5 MCG;BID;SC
     Route: 058
     Dates: start: 20050901, end: 20051201
  2. BYETTA [Suspect]
     Indication: DIABETES MELLITUS NON-INSULIN-DEPENDENT
     Dosage: 10 MCG;BD;SC, 5 MCG;BID;SC
     Route: 058
     Dates: start: 20051201
  3. METFORMIN HCL [Concomitant]
  4. GLIPIZIDE [Concomitant]

REACTIONS (5)
  - ALOPECIA [None]
  - BLOOD GLUCOSE INCREASED [None]
  - DERMATITIS EXFOLIATIVE [None]
  - DRUG INEFFECTIVE [None]
  - INJECTION SITE BRUISING [None]
